FAERS Safety Report 16839468 (Version 1)
Quarter: 2019Q3

REPORT INFORMATION
  Report Type: Spontaneous
  Country: AU (occurrence: AU)
  Receive Date: 20190923
  Receipt Date: 20190923
  Transmission Date: 20191005
  Serious: Yes (Other)
  Sender: FDA-Public Use
  Company Number: AU-BRISTOL-MYERS SQUIBB COMPANY-BMS-2019-091739

PATIENT
  Sex: Male

DRUGS (1)
  1. ELIQUIS [Suspect]
     Active Substance: APIXABAN
     Indication: ARTHROSCOPY
     Dosage: 5 MILLIGRAM, BID
     Route: 065

REACTIONS (4)
  - Deep vein thrombosis [Unknown]
  - Treatment noncompliance [Unknown]
  - Intentional product use issue [Unknown]
  - Pulmonary embolism [Unknown]
